FAERS Safety Report 18569997 (Version 1)
Quarter: 2020Q4

REPORT INFORMATION
  Report Type: Spontaneous
  Country: US (occurrence: US)
  Receive Date: 20201202
  Receipt Date: 20201202
  Transmission Date: 20210114
  Serious: No
  Sender: FDA-Public Use
  Company Number: US-DECIPHERA PHARMACEUTICALS LLC-2020-US-000638

PATIENT
  Age: 59 Year
  Sex: Female

DRUGS (2)
  1. QINLOCK [Suspect]
     Active Substance: RIPRETINIB
     Indication: GASTROINTESTINAL STROMAL TUMOUR
     Dosage: 100 MILLIGRAM, QD
     Route: 048
     Dates: start: 20201012
  2. QINLOCK [Suspect]
     Active Substance: RIPRETINIB
     Dosage: 100 MILLIGRAM, QD
     Route: 048
     Dates: start: 20201014

REACTIONS (7)
  - Hot flush [Unknown]
  - Diarrhoea [Recovering/Resolving]
  - Erythema [Unknown]
  - Periarthritis [Unknown]
  - Peripheral swelling [Unknown]
  - Blister [Unknown]
  - Underdose [Unknown]

NARRATIVE: CASE EVENT DATE: 20201025
